FAERS Safety Report 21183648 (Version 2)
Quarter: 2022Q4

REPORT INFORMATION
  Report Type: Spontaneous
  Country: US (occurrence: US)
  Receive Date: 20220808
  Receipt Date: 20221017
  Transmission Date: 20230112
  Serious: No
  Sender: FDA-Public Use
  Company Number: US-PCCINC-2022-PEL-000408

PATIENT

DRUGS (4)
  1. GABLOFEN [Suspect]
     Active Substance: BACLOFEN
     Indication: Muscle spasticity
     Dosage: 268.3 MICROGRAM
     Route: 037
  2. LIORESAL [Suspect]
     Active Substance: BACLOFEN
     Indication: Muscle spasticity
     Dosage: 268.5 MICROGRAM
     Route: 065
  3. LIORESAL [Suspect]
     Active Substance: BACLOFEN
     Dosage: BRIDGE BOLUS (11.2 MCG/HR IN PLACE OF 10.4 MCG/HR)
  4. LIORESAL [Suspect]
     Active Substance: BACLOFEN
     Dosage: 268.3 MICROGRAM

REACTIONS (3)
  - Incorrect dose administered [Unknown]
  - Hypotonia [Unknown]
  - Gait disturbance [Unknown]
